FAERS Safety Report 5305667-1 (Version None)
Quarter: 2007Q2

REPORT INFORMATION
  Report Type: 
  Country: None (occurrence: None)
  Receive Date: 20070423
  Receipt Date: 20070423
  Transmission Date: 20071010
  Serious: Yes (Hospitalization)
  Sender: FDA-Public Use
  Company Number: None

PATIENT
  Age: 78 Year
  Sex: Male
  Weight: 45.3597 kg

DRUGS (1)
  1. PHENYTOIN [Suspect]
     Dosage: 100MG QID PO
     Route: 048
     Dates: start: 20061127, end: 20070318

REACTIONS (3)
  - CHOREOATHETOSIS [None]
  - MENTAL DISORDER [None]
  - MENTAL IMPAIRMENT [None]
